FAERS Safety Report 8199161-0 (Version None)
Quarter: 2012Q1

REPORT INFORMATION
  Report Type: 
  Country: None (occurrence: None)
  Receive Date: 20120309
  Receipt Date: 20120308
  Transmission Date: 20120608
  Serious: No
  Sender: FDA-Public Use
  Company Number: US-PFIZER INC-2012062499

PATIENT
  Sex: Female
  Weight: 92.971 kg

DRUGS (3)
  1. CHANTIX [Suspect]
     Indication: SMOKING CESSATION THERAPY
     Dosage: 0.5 MG, 1X/DAY
     Route: 048
     Dates: start: 20120219
  2. CHANTIX [Suspect]
     Dosage: 1 MG, 2X/DAY
     Route: 048
     Dates: end: 20120305
  3. NUVARING [Concomitant]
     Indication: CONTRACEPTION
     Dosage: UNK

REACTIONS (4)
  - DREAMY STATE [None]
  - RAPID EYE MOVEMENTS SLEEP ABNORMAL [None]
  - PRURITUS [None]
  - RASH [None]
